FAERS Safety Report 19483300 (Version 3)
Quarter: 2025Q1

REPORT INFORMATION
  Report Type: Spontaneous
  Country: GB (occurrence: GB)
  Receive Date: 20210701
  Receipt Date: 20250228
  Transmission Date: 20250409
  Serious: Yes (Disabling, Other)
  Sender: AMGEN
  Company Number: GB-AMGEN-GBRSP2017177361

PATIENT
  Age: 78 Year
  Sex: Female

DRUGS (6)
  1. PROLIA [Suspect]
     Active Substance: DENOSUMAB
     Indication: Osteoporosis postmenopausal
     Dosage: 60 MILLIGRAM, Q6MO
     Route: 065
     Dates: start: 20170917, end: 2017
  2. PROLIA [Suspect]
     Active Substance: DENOSUMAB
  3. EVENITY [Suspect]
     Active Substance: ROMOSOZUMAB-AQQG
     Indication: Spinal fracture
     Route: 065
     Dates: start: 202107
  4. COVID-19 VACCINE [Concomitant]
  5. BISOPROLOL [Concomitant]
     Active Substance: BISOPROLOL
     Dosage: 1.25 MILLIGRAM, QD
  6. CEPHALOSPORIN C [Concomitant]
     Active Substance: CEPHALOSPORIN C
     Indication: Urinary tract infection

REACTIONS (18)
  - Polychondritis [Recovered/Resolved]
  - Thoracic vertebral fracture [Recovered/Resolved]
  - Fractured sacrum [Recovered/Resolved]
  - Gastrointestinal haemorrhage [Recovered/Resolved]
  - Heart valve incompetence [Recovered/Resolved]
  - Lumbar vertebral fracture [Recovered/Resolved]
  - Cardiac output increased [Recovered/Resolved]
  - Anaemia [Recovered/Resolved]
  - Cardiac failure [Recovered/Resolved]
  - Femoral neck fracture [Recovered/Resolved]
  - Dyspnoea [Unknown]
  - Chest discomfort [Unknown]
  - Bronchospasm [Unknown]
  - Urticaria [Recovered/Resolved]
  - Back pain [Recovered/Resolved]
  - Kyphoscoliosis [Recovered/Resolved]
  - Body height decreased [Recovered/Resolved]
  - Dyspepsia [Recovered/Resolved]

NARRATIVE: CASE EVENT DATE: 20170101
